FAERS Safety Report 4588433-4 (Version None)
Quarter: 2005Q1

REPORT INFORMATION
  Report Type: 
  Country: None (occurrence: None)
  Receive Date: 20050216
  Receipt Date: 20050201
  Transmission Date: 20050727
  Serious: Yes (Disabling, Other)
  Sender: FDA-Public Use
  Company Number: USA031253708

PATIENT
  Age: 53 Year
  Sex: Male
  Weight: 85 kg

DRUGS (4)
  1. HUMALOG [Suspect]
     Indication: DIABETES MELLITUS
     Dates: start: 20020101
  2. LENTE ILETIN II (PORK) [Suspect]
     Indication: DIABETES MELLITUS
     Dates: start: 19620101, end: 20020101
  3. ILETIN-BEEF/PORK SEMILENTE INSULIN (INSULIN, ANIMAL [Suspect]
     Indication: DIABETES MELLITUS
     Dates: start: 19620101, end: 20020101
  4. LANTUS [Concomitant]

REACTIONS (8)
  - BLINDNESS UNILATERAL [None]
  - BLOOD GLUCOSE INCREASED [None]
  - CATARACT [None]
  - DEVICE FAILURE [None]
  - EYE HAEMORRHAGE [None]
  - GAZE PALSY [None]
  - IMPAIRED DRIVING ABILITY [None]
  - PHARMACEUTICAL PRODUCT COMPLAINT [None]
